FAERS Safety Report 7016072-4 (Version None)
Quarter: 2010Q3

REPORT INFORMATION
  Report Type: 
  Country: None (occurrence: None)
  Receive Date: 20100923
  Receipt Date: 20100915
  Transmission Date: 20110219
  Serious: Yes (Hospitalization, Other)
  Sender: FDA-Public Use
  Company Number: 018821

PATIENT
  Age: 61 Year
  Sex: Female

DRUGS (2)
  1. KEPPRA [Suspect]
     Dosage: (3500 MG)
  2. VIMPAT [Suspect]
     Dosage: (200 MG BID)

REACTIONS (4)
  - OVERDOSE [None]
  - PERSONALITY CHANGE [None]
  - STATUS EPILEPTICUS [None]
  - SUICIDAL IDEATION [None]
